FAERS Safety Report 21311288 (Version 1)
Quarter: 2022Q3

REPORT INFORMATION
  Report Type: Spontaneous
  Country: US (occurrence: None)
  Receive Date: 20220909
  Receipt Date: 20220909
  Transmission Date: 20221026
  Serious: No
  Sender: FDA-Public Use
  Company Number: US-ARIS GLOBAL-202202-0304

PATIENT
  Age: 76 Year
  Sex: Female

DRUGS (16)
  1. OXERVATE [Suspect]
     Active Substance: CENEGERMIN-BKBJ
     Indication: Neurotrophic keratopathy
     Route: 047
     Dates: start: 20220209
  2. CITRACAL-D3 PETITES [Concomitant]
  3. ALBUTEROL\IPRATROPIUM [Concomitant]
     Active Substance: ALBUTEROL\IPRATROPIUM
  4. MURO [Concomitant]
     Dosage: INTRAVENOUS SOLUTION
  5. DORZOLAMIDE\TIMOLOL [Concomitant]
     Active Substance: DORZOLAMIDE\TIMOLOL
  6. LATANOPROST [Concomitant]
     Active Substance: LATANOPROST
  7. REFRESH DIGITAL [Concomitant]
     Active Substance: CARBOXYMETHYLCELLULOSE SODIUM\GLYCERIN\POLYSORBATE 80
     Dosage: 0.5-1-0.5%
  8. RESTASIS [Concomitant]
     Active Substance: CYCLOSPORINE
  9. VITAMIN D3 [Concomitant]
     Active Substance: CHOLECALCIFEROL
  10. FLECAINIDE ACETATE [Concomitant]
     Active Substance: FLECAINIDE ACETATE
  11. FUROSEMIDE [Concomitant]
     Active Substance: FUROSEMIDE
  12. POTASSIUM CHLORIDE [Concomitant]
     Active Substance: POTASSIUM CHLORIDE
  13. METOPROLOL SUCCINATE [Concomitant]
     Active Substance: METOPROLOL SUCCINATE
  14. MONTELUKAST SODIUM [Concomitant]
     Active Substance: MONTELUKAST SODIUM
  15. SIMVASTATIN [Concomitant]
     Active Substance: SIMVASTATIN
  16. PREDNISOLONE-NEPAFENAC [Concomitant]

REACTIONS (1)
  - Ocular hyperaemia [Not Recovered/Not Resolved]

NARRATIVE: CASE EVENT DATE: 20220201
